FAERS Safety Report 8831509 (Version 3)
Quarter: 2013Q1

REPORT INFORMATION
  Report Type: Spontaneous
  Country: JP (occurrence: JP)
  Receive Date: 20121008
  Receipt Date: 20130116
  Transmission Date: 20140127
  Serious: Yes (Hospitalization)
  Sender: FDA-Public Use
  Company Number: JP-GLAXOSMITHKLINE-B0820110A

PATIENT
  Age: 14 Year
  Sex: Female
  Weight: 44 kg

DRUGS (8)
  1. LAMICTAL [Suspect]
     Indication: BIPOLAR DISORDER
     Dosage: 25MG PER DAY
     Route: 048
     Dates: start: 20120710, end: 20120727
  2. LAMICTAL [Suspect]
     Indication: BIPOLAR DISORDER
     Dosage: 25MG TWICE PER DAY
     Route: 048
     Dates: start: 20120727, end: 20120729
  3. KIPRES [Concomitant]
     Indication: ASTHMA
     Dosage: 5MG PER DAY
     Route: 048
  4. ZYPREXA [Concomitant]
     Indication: BIPOLAR DISORDER
     Dosage: 10MG PER DAY
     Route: 048
     Dates: start: 20120710, end: 20120729
  5. TOMIRON [Concomitant]
     Indication: NASOPHARYNGITIS
     Dosage: 100MG THREE TIMES PER DAY
     Route: 048
     Dates: start: 20120728, end: 20120729
  6. SAWATENE [Concomitant]
     Route: 048
     Dates: start: 20120728
  7. BRUFEN [Concomitant]
     Route: 048
     Dates: start: 20120728
  8. OFLOXACIN [Concomitant]
     Route: 031
     Dates: start: 20120728

REACTIONS (31)
  - Toxic epidermal necrolysis [Recovering/Resolving]
  - Stevens-Johnson syndrome [Recovering/Resolving]
  - Pyrexia [Unknown]
  - Eye discharge [Unknown]
  - Tonsillitis [Unknown]
  - Conjunctivitis [Unknown]
  - Rash generalised [Unknown]
  - Asthma [Unknown]
  - Vomiting [Unknown]
  - Oropharyngeal pain [Unknown]
  - Cheilitis [Unknown]
  - C-reactive protein increased [Unknown]
  - Aspartate aminotransferase increased [Unknown]
  - Alanine aminotransferase increased [Unknown]
  - Neutrophil percentage increased [Unknown]
  - Eosinophil percentage decreased [Unknown]
  - Lymphocyte percentage decreased [Unknown]
  - Ocular hyperaemia [Unknown]
  - Erythema of eyelid [Unknown]
  - Eyelid erosion [Unknown]
  - Conjunctivitis [Unknown]
  - Lip erosion [Unknown]
  - Oral mucosa erosion [Unknown]
  - Scab [Unknown]
  - Vulval disorder [Unknown]
  - Rash maculo-papular [Unknown]
  - Erythema [Unknown]
  - Blister [Unknown]
  - Skin erosion [Unknown]
  - Conjunctival hyperaemia [Unknown]
  - Skin exfoliation [Unknown]
